FAERS Safety Report 13060355 (Version 1)
Quarter: 2016Q4

REPORT INFORMATION
  Report Type: Spontaneous
  Country: FR (occurrence: FR)
  Receive Date: 20161223
  Receipt Date: 20161223
  Transmission Date: 20170207
  Serious: Yes (Other)
  Sender: FDA-Public Use
  Company Number: FR-AMGEN-FRASP2016179453

PATIENT
  Age: 68 Year
  Sex: Male

DRUGS (5)
  1. BENDAMUSTINE [Concomitant]
     Active Substance: BENDAMUSTINE
     Indication: MALIGNANT NEOPLASM PROGRESSION
  2. NEULASTA [Suspect]
     Active Substance: PEGFILGRASTIM
     Indication: PROPHYLAXIS
     Dosage: UNK
     Route: 058
     Dates: start: 20160923, end: 20160923
  3. RITUXIMAB [Concomitant]
     Active Substance: RITUXIMAB
     Indication: MALIGNANT NEOPLASM PROGRESSION
  4. BENDAMUSTINE [Concomitant]
     Active Substance: BENDAMUSTINE
     Indication: METASTATIC LYMPHOMA
     Dosage: UNK
     Dates: start: 20160623
  5. RITUXIMAB [Concomitant]
     Active Substance: RITUXIMAB
     Indication: METASTATIC LYMPHOMA
     Dosage: UNK
     Dates: start: 20160623

REACTIONS (3)
  - Urinary incontinence [Recovered/Resolved]
  - Tremor [Recovered/Resolved]
  - Loss of consciousness [Recovered/Resolved]

NARRATIVE: CASE EVENT DATE: 20160923
